FAERS Safety Report 8090771-8 (Version None)
Quarter: 2012Q1

REPORT INFORMATION
  Report Type: 
  Country: None (occurrence: None)
  Receive Date: 20120125
  Receipt Date: 20120118
  Transmission Date: 20120608
  Serious: Yes (Other)
  Sender: FDA-Public Use
  Company Number: AUR-APL-2012-00568

PATIENT
  Age: 63 Year
  Sex: Male

DRUGS (13)
  1. ALLOPURINOL [Concomitant]
  2. LOPRAZOLAM (LOPRAZOLAM) [Concomitant]
  3. PREDNISOLONE [Concomitant]
  4. SIMVASTATIN [Concomitant]
  5. ACETAMINOPHEN W/ CODEINE [Concomitant]
  6. COLCHICINE [Concomitant]
  7. TRAMADOL HCL [Concomitant]
  8. RAMIPRIL [Suspect]
     Indication: PRODUCT USED FOR UNKNOWN INDICATION
     Dosage: 7.5 MG (7.5 MG, 1 IN 1 D), ORAL
     Route: 048
  9. FUROSEMIDE [Concomitant]
  10. WARFARIN SODIUM [Concomitant]
  11. LANSOPRAZOLE [Concomitant]
  12. BISOPROLOL FUMARATE [Concomitant]
  13. DIGOXIN [Concomitant]

REACTIONS (2)
  - GOUT [None]
  - CONDITION AGGRAVATED [None]
